FAERS Safety Report 11004694 (Version 1)
Quarter: 2015Q2

REPORT INFORMATION
  Report Type: Spontaneous
  Country: US (occurrence: US)
  Receive Date: 20150409
  Receipt Date: 20150409
  Transmission Date: 20150821
  Serious: Yes (Other)
  Sender: FDA-Public Use
  Company Number: US-BAYER-2015-116814

PATIENT
  Age: 63 Year
  Sex: Male

DRUGS (4)
  1. XOFIGO [Suspect]
     Active Substance: RADIUM RA-223 DICHLORIDE
     Indication: PROSTATE CANCER
     Dosage: 50 KBQ PER KG OF BODY WEIGHT; EVERY 28 DAYS
     Route: 042
     Dates: start: 20150318, end: 20150318
  2. XOFIGO [Suspect]
     Active Substance: RADIUM RA-223 DICHLORIDE
     Indication: PROSTATE CANCER
     Dosage: 50 KBQ PER KG OF BODY WEIGHT; EVERY 28 DAYS
     Route: 042
  3. XOFIGO [Suspect]
     Active Substance: RADIUM RA-223 DICHLORIDE
     Indication: METASTASES TO BONE
     Dosage: 50 KBQ PER KG OF BODY WEIGHT; EVERY 28 DAYS
     Route: 042
  4. XOFIGO [Suspect]
     Active Substance: RADIUM RA-223 DICHLORIDE
     Indication: PROSTATE CANCER
     Dosage: 50 KBQ PER KG OF BODY WEIGHT; EVERY 28 DAYS
     Route: 042

REACTIONS (1)
  - Metastases to liver [None]
